FAERS Safety Report 12276042 (Version 6)
Quarter: 2016Q3

REPORT INFORMATION
  Report Type: Report from Study
  Country: CA (occurrence: CA)
  Receive Date: 20160418
  Receipt Date: 20160816
  Transmission Date: 20161109
  Serious: Yes (Other)
  Sender: FDA-Public Use
  Company Number: CA-ROCHE-1743024

PATIENT
  Age: 39 Year
  Sex: Female

DRUGS (2)
  1. AVASTIN [Suspect]
     Active Substance: BEVACIZUMAB
     Indication: GLIOBLASTOMA
     Route: 042
     Dates: start: 20160304, end: 20160624
  2. CARBAMAZEPINE. [Concomitant]
     Active Substance: CARBAMAZEPINE

REACTIONS (11)
  - Gait disturbance [Unknown]
  - Memory impairment [Unknown]
  - White blood cells urine [Unknown]
  - PO2 increased [Unknown]
  - Blood albumin decreased [Not Recovered/Not Resolved]
  - Gamma-glutamyltransferase increased [Not Recovered/Not Resolved]
  - PCO2 decreased [Unknown]
  - Lymphocyte count decreased [Unknown]
  - Blood bicarbonate decreased [Unknown]
  - Contusion [Unknown]
  - Fall [Unknown]

NARRATIVE: CASE EVENT DATE: 20160413
